FAERS Safety Report 17765873 (Version 2)
Quarter: 2020Q2

REPORT INFORMATION
  Report Type: Spontaneous
  Country: US (occurrence: US)
  Receive Date: 20200511
  Receipt Date: 20200619
  Transmission Date: 20200714
  Serious: No
  Sender: FDA-Public Use
  Company Number: US-ASTRAZENECA-2020SE59688

PATIENT
  Sex: Female
  Weight: 60.1 kg

DRUGS (5)
  1. OLAPATADINE [Concomitant]
  2. PULMICORT FLEXHALER [Suspect]
     Active Substance: BUDESONIDE
     Indication: ASTHMA
     Dosage: 90 MCG 1 OR 2 INHALATIONS AS NEEDED
     Route: 055
  3. NASONEX [Concomitant]
     Active Substance: MOMETASONE FUROATE
  4. NASAL SPRAYS [Concomitant]
  5. ZYRTEC [Concomitant]
     Active Substance: CETIRIZINE HYDROCHLORIDE

REACTIONS (4)
  - Intentional device misuse [Not Recovered/Not Resolved]
  - Wrong technique in device usage process [Unknown]
  - Dyspnoea [Unknown]
  - Device issue [Unknown]
